FAERS Safety Report 5160275-0 (Version None)
Quarter: 2006Q4

REPORT INFORMATION
  Report Type: 
  Country: None (occurrence: None)
  Receive Date: 20061129
  Receipt Date: 20060627
  Transmission Date: 20070319
  Serious: Yes (Other)
  Sender: FDA-Public Use
  Company Number: JP-JPN-A200602317

PATIENT
  Age: 37 Year
  Sex: Female

DRUGS (10)
  1. PAXIL [Suspect]
     Indication: FIBROMYALGIA
     Dosage: 10MG PER DAY
     Route: 048
     Dates: start: 20060223, end: 20060419
  2. DOGMATYL [Suspect]
     Indication: FIBROMYALGIA
     Dosage: 150MG PER DAY
     Route: 048
     Dates: start: 20060522
  3. MERISLON [Concomitant]
     Indication: DIZZINESS
     Dosage: 18MG PER DAY
     Route: 048
     Dates: start: 20060214
  4. ULGUT [Concomitant]
     Dosage: 600MG PER DAY
     Route: 048
     Dates: start: 20060117
  5. LOXONIN [Concomitant]
     Indication: HEADACHE
     Dosage: 180MG PER DAY
     Route: 048
     Dates: start: 20060117
  6. GASTER D [Concomitant]
     Dosage: 20MG PER DAY
     Route: 048
     Dates: start: 20060117
  7. RIZE [Concomitant]
     Indication: ANXIETY
     Dosage: 5MG PER DAY
     Route: 048
     Dates: start: 20060303
  8. PONTAL [Concomitant]
     Indication: HEADACHE
     Dosage: 500MG PER DAY
     Route: 048
     Dates: start: 20060303, end: 20060308
  9. NAUZELIN [Concomitant]
     Indication: NAUSEA
     Route: 048
     Dates: start: 20060303
  10. LUVOX [Concomitant]
     Indication: FIBROMYALGIA
     Dosage: 50MG PER DAY
     Route: 048
     Dates: start: 20060511

REACTIONS (2)
  - AMENORRHOEA [None]
  - OVARIAN ATROPHY [None]
